FAERS Safety Report 20650790 (Version 1)
Quarter: 2022Q1

REPORT INFORMATION
  Report Type: Spontaneous
  Country: US (occurrence: US)
  Receive Date: 20220329
  Receipt Date: 20220329
  Transmission Date: 20220424
  Serious: Yes (Other)
  Sender: FDA-Public Use
  Company Number: US-SEATTLE GENETICS-2021SGN05685

PATIENT
  Age: 18 Year
  Sex: Female

DRUGS (7)
  1. ADCETRIS [Suspect]
     Active Substance: BRENTUXIMAB VEDOTIN
     Indication: Hodgkin^s disease
     Dosage: 1.2 MG/KG, Q2WEEKS
     Route: 042
  2. ADCETRIS [Suspect]
     Active Substance: BRENTUXIMAB VEDOTIN
     Dosage: 0.9 MG/KG
  3. GRANULOCYTE COLONY-STIMULATING FACTOR NOS [Suspect]
     Active Substance: GRANULOCYTE COLONY-STIMULATING FACTOR NOS
     Indication: Product used for unknown indication
  4. DOXORUBICIN [Concomitant]
     Active Substance: DOXORUBICIN
  5. VINBLASTINE [Concomitant]
     Active Substance: VINBLASTINE
  6. DACARBAZINE [Concomitant]
     Active Substance: DACARBAZINE
  7. NEULASTA [Concomitant]
     Active Substance: PEGFILGRASTIM

REACTIONS (3)
  - Neuropathy peripheral [Recovered/Resolved]
  - Constipation [Recovered/Resolved]
  - Arthralgia [Recovered/Resolved]

NARRATIVE: CASE EVENT DATE: 20000203
